FAERS Safety Report 4519885-3 (Version None)
Quarter: 2004Q4

REPORT INFORMATION
  Report Type: 
  Country: None (occurrence: None)
  Receive Date: 20041201
  Receipt Date: 20041201
  Transmission Date: 20050328
  Serious: Yes (Hospitalization, Disabling, Other)
  Sender: FDA-Public Use
  Company Number: None

PATIENT
  Sex: Female
  Weight: 74.8435 kg

DRUGS (18)
  1. MEVACOR [Suspect]
     Indication: HYPERCHOLESTEROLAEMIA
     Dosage: 1    DAY   ORAL
     Route: 048
     Dates: start: 19861102, end: 19910610
  2. VIOXX [Suspect]
     Indication: FIBROMYALGIA
     Dosage: 1      DAY   ORAL
     Route: 048
     Dates: start: 19890728, end: 20040901
  3. VIOXX [Suspect]
     Indication: OSTEOARTHRITIS
     Dosage: 1      DAY   ORAL
     Route: 048
     Dates: start: 19890728, end: 20040901
  4. MEVACOR-ERYTHROMYCIN [Concomitant]
  5. NIACIN [Concomitant]
  6. ZYRTEC [Concomitant]
  7. LIBRAX [Concomitant]
  8. DILEX [Concomitant]
  9. ALBUTEROL [Concomitant]
  10. LEXAPRO [Concomitant]
  11. PRILOSEC [Concomitant]
  12. IMITREX [Concomitant]
  13. SONATA [Concomitant]
  14. AMBIEN [Concomitant]
  15. LORTAB [Concomitant]
  16. DARVOCET [Concomitant]
  17. ELAVIL [Concomitant]
  18. BUSPAR [Concomitant]

REACTIONS (35)
  - ANOREXIA [None]
  - BLOOD PRESSURE FLUCTUATION [None]
  - BLOOD TRIGLYCERIDES INCREASED [None]
  - CHEST PAIN [None]
  - CHRONIC FATIGUE SYNDROME [None]
  - CONDITION AGGRAVATED [None]
  - DEPRESSION [None]
  - DRUG EFFECT DECREASED [None]
  - FATIGUE [None]
  - FEELING ABNORMAL [None]
  - FIBROMYALGIA [None]
  - GALLBLADDER DISORDER [None]
  - HORMONE LEVEL ABNORMAL [None]
  - HYPERTENSION [None]
  - HYPOAESTHESIA [None]
  - HYPOTENSION [None]
  - INSOMNIA [None]
  - IRRITABLE BOWEL SYNDROME [None]
  - LOSS OF EMPLOYMENT [None]
  - MUSCLE DISORDER [None]
  - MUSCULAR WEAKNESS [None]
  - MYALGIA [None]
  - NERVOUSNESS [None]
  - OSTEOARTHRITIS [None]
  - PAIN [None]
  - PANIC ATTACK [None]
  - PSYCHOMOTOR HYPERACTIVITY [None]
  - SUICIDAL IDEATION [None]
  - SURGERY [None]
  - TACHYCARDIA [None]
  - THINKING ABNORMAL [None]
  - TOTAL HYSTERECTOMY [None]
  - UPPER RESPIRATORY TRACT INFECTION [None]
  - VISION BLURRED [None]
  - WEIGHT INCREASED [None]
